FAERS Safety Report 15358464 (Version 2)
Quarter: 2018Q3

REPORT INFORMATION
  Report Type: Spontaneous
  Country: KR (occurrence: KR)
  Receive Date: 20180906
  Receipt Date: 20180906
  Transmission Date: 20181010
  Serious: Yes (Other)
  Sender: FDA-Public Use
  Company Number: KR-BAYER-2018-163840

PATIENT
  Age: 62 Year
  Sex: Female

DRUGS (4)
  1. ADRIAMYCIN [Suspect]
     Active Substance: DOXORUBICIN HYDROCHLORIDE
  2. SORAFENIB (RAF KINASE INHIBITOR) [Suspect]
     Active Substance: SORAFENIB
     Indication: HEPATOCELLULAR CARCINOMA
     Dosage: DAILY DOSE, 400 MG
     Route: 048
  3. SORAFENIB (RAF KINASE INHIBITOR) [Suspect]
     Active Substance: SORAFENIB
     Indication: LUNG CANCER METASTATIC
     Dosage: DAILY DOSE, 800 MG
     Route: 048
  4. CISPLATIN. [Suspect]
     Active Substance: CISPLATIN

REACTIONS (8)
  - Rash [Recovering/Resolving]
  - Drug ineffective [None]
  - Disease progression [None]
  - Hypoaesthesia [Recovered/Resolved]
  - Thrombocytopenia [Recovering/Resolving]
  - Diarrhoea [Recovered/Resolved]
  - Metastases to lung [Recovering/Resolving]
  - Palmar-plantar erythrodysaesthesia syndrome [Recovering/Resolving]
